FAERS Safety Report 7984594-5 (Version None)
Quarter: 2011Q4

REPORT INFORMATION
  Report Type: 
  Country: None (occurrence: None)
  Receive Date: 20111216
  Receipt Date: 20111212
  Transmission Date: 20120403
  Serious: Yes (Other)
  Sender: FDA-Public Use
  Company Number: US-JNJFOC-20100703767

PATIENT
  Sex: Female

DRUGS (2)
  1. LEVAQUIN [Suspect]
     Indication: SINUSITIS
     Route: 048
     Dates: start: 20070201
  2. LEVAQUIN [Suspect]
     Indication: NEPHROLITHIASIS
     Route: 048
     Dates: start: 20070201

REACTIONS (4)
  - TENDONITIS [None]
  - TENDON RUPTURE [None]
  - LIGAMENT RUPTURE [None]
  - DEPRESSION [None]
